FAERS Safety Report 19719743 (Version 1)
Quarter: 2021Q3

REPORT INFORMATION
  Report Type: Spontaneous
  Country: DE (occurrence: DE)
  Receive Date: 20210818
  Receipt Date: 20210818
  Transmission Date: 20211014
  Serious: Yes (Hospitalization)
  Sender: FDA-Public Use
  Company Number: DE-MYLANLABS-2021M1051740

PATIENT
  Age: 83 Year
  Sex: Male

DRUGS (2)
  1. PHENPROCOUMON [Concomitant]
     Active Substance: PHENPROCOUMON
     Dosage: UNK (BY VALUE)
  2. BISOPROLOL [Suspect]
     Active Substance: BISOPROLOL
     Indication: PRODUCT USED FOR UNKNOWN INDICATION
     Dosage: 2.5 MILLIGRAM, QD (1?0?0?0)

REACTIONS (6)
  - Depressed level of consciousness [Unknown]
  - Confusional state [Unknown]
  - General physical health deterioration [Unknown]
  - Disorientation [Unknown]
  - Hypotension [Unknown]
  - Fall [Unknown]
